FAERS Safety Report 24143530 (Version 1)
Quarter: 2024Q3

REPORT INFORMATION
  Report Type: Report from Study
  Country: CA (occurrence: CA)
  Receive Date: 20240727
  Receipt Date: 20240727
  Transmission Date: 20241016
  Serious: Yes (Hospitalization, Other)
  Sender: ABBVIE
  Company Number: CA-ABBVIE-5852042

PATIENT
  Age: 81 Year
  Sex: Female

DRUGS (3)
  1. RINVOQ [Suspect]
     Active Substance: UPADACITINIB
     Indication: Rheumatoid arthritis
     Dosage: FORM STRENGTH :15 MILLIGRAM?LAST ADMIN DATE- 2024
     Route: 048
     Dates: start: 20240226
  2. RINVOQ [Suspect]
     Active Substance: UPADACITINIB
     Indication: Rheumatoid arthritis
     Dosage: FORM STRENGTH :15 MILLIGRAM
     Route: 048
     Dates: end: 2023
  3. RINVOQ [Suspect]
     Active Substance: UPADACITINIB
     Indication: Rheumatoid arthritis
     Dosage: FORM STRENGTH :15 MILLIGRAM
     Route: 048
     Dates: end: 20240225

REACTIONS (6)
  - Pneumonia [Unknown]
  - COVID-19 [Recovered/Resolved]
  - Lung lobectomy [Recovering/Resolving]
  - Pneumonia [Recovered/Resolved]
  - COVID-19 [Unknown]
  - Pain [Not Recovered/Not Resolved]

NARRATIVE: CASE EVENT DATE: 20231001
